FAERS Safety Report 25794874 (Version 2)
Quarter: 2025Q3

REPORT INFORMATION
  Report Type: Spontaneous
  Country: AR (occurrence: AR)
  Receive Date: 20250912
  Receipt Date: 20250917
  Transmission Date: 20251021
  Serious: Yes (Death)
  Sender: SANDOZ
  Company Number: AR-002147023-NVSC2025AR141832

PATIENT
  Age: 68 Year
  Sex: Female

DRUGS (3)
  1. FULVESTRANT [Suspect]
     Active Substance: FULVESTRANT
     Indication: Breast cancer metastatic
     Route: 065
     Dates: start: 202508, end: 20250907
  2. KISQALI [Suspect]
     Active Substance: RIBOCICLIB SUCCINATE
     Indication: Breast cancer metastatic
     Route: 048
     Dates: start: 202508, end: 20250907
  3. MORPHINE [Concomitant]
     Active Substance: MORPHINE
     Indication: Product used for unknown indication
     Route: 065

REACTIONS (1)
  - Cardiac arrest [Fatal]

NARRATIVE: CASE EVENT DATE: 20250908
